FAERS Safety Report 5856494-8 (Version None)
Quarter: 2008Q3

REPORT INFORMATION
  Report Type: 
  Country: None (occurrence: None)
  Receive Date: 20080825
  Receipt Date: 20080611
  Transmission Date: 20090109
  Serious: No
  Sender: FDA-Public Use
  Company Number: A0732452A

PATIENT
  Age: 71 Year
  Sex: Female

DRUGS (13)
  1. VERAMYST [Suspect]
     Indication: POSTNASAL DRIP
     Dosage: 1SPR PER DAY
     Route: 045
     Dates: start: 20080514
  2. ZANTAC [Concomitant]
  3. ASMANEX TWISTHALER [Concomitant]
  4. FORADIL [Concomitant]
  5. SPIRIVA [Concomitant]
  6. SYNTHROID [Concomitant]
  7. PROVENTIL-HFA [Concomitant]
  8. OXYGEN [Concomitant]
  9. XANAX [Concomitant]
  10. PERCOCET [Concomitant]
  11. LORTAB [Concomitant]
  12. FEXOFENADINE [Concomitant]
  13. PREMARIN [Concomitant]

REACTIONS (4)
  - CHEST DISCOMFORT [None]
  - GASTRITIS [None]
  - GASTROINTESTINAL SOUNDS ABNORMAL [None]
  - NAUSEA [None]
